FAERS Safety Report 17970543 (Version 1)
Quarter: 2020Q3

REPORT INFORMATION
  Report Type: Spontaneous
  Country: US (occurrence: US)
  Receive Date: 20200701
  Receipt Date: 20200701
  Transmission Date: 20201103
  Serious: Yes (Hospitalization, Other)
  Sender: FDA-Public Use
  Company Number: US-PURDUE-USA-2020-0156047

PATIENT
  Sex: Male

DRUGS (1)
  1. HYDROCODONE BITARTRATE (SIMILAR TO NDA 206627) [Suspect]
     Active Substance: HYDROCODONE BITARTRATE
     Indication: MUSCULOSKELETAL PAIN
     Dosage: 300 UNIT, MONTHLY
     Route: 048
     Dates: end: 2012

REACTIONS (7)
  - Product prescribing issue [Unknown]
  - Drug ineffective [Unknown]
  - Overdose [Unknown]
  - Suicide attempt [Unknown]
  - Drug dependence [Unknown]
  - Intentional product misuse [Unknown]
  - Drug tolerance [Unknown]
